FAERS Safety Report 23291913 (Version 2)
Quarter: 2023Q4

REPORT INFORMATION
  Report Type: Spontaneous
  Country: FR (occurrence: FR)
  Receive Date: 20231213
  Receipt Date: 20231227
  Transmission Date: 20240110
  Serious: No
  Sender: FDA-Public Use
  Company Number: FR-PFIZER INC-PV202300192400

PATIENT
  Age: 4 Year
  Sex: Female

DRUGS (1)
  1. SOMATROPIN [Suspect]
     Active Substance: SOMATROPIN
     Dosage: 0.5 MG
     Route: 058
     Dates: start: 20231028

REACTIONS (7)
  - Injection site hypersensitivity [Recovering/Resolving]
  - Injection site swelling [Recovering/Resolving]
  - Injection site erythema [Recovering/Resolving]
  - Injection site pain [Recovering/Resolving]
  - Pain [Unknown]
  - Injection site rash [Recovering/Resolving]
  - Injection site induration [Unknown]

NARRATIVE: CASE EVENT DATE: 20231119
